FAERS Safety Report 5620180-X (Version None)
Quarter: 2008Q1

REPORT INFORMATION
  Report Type: 
  Country: None (occurrence: None)
  Receive Date: 20080208
  Receipt Date: 20080131
  Transmission Date: 20080703
  Serious: Yes (Disabling, Other)
  Sender: FDA-Public Use
  Company Number: US-ELI_LILLY_AND_COMPANY-US200801007012

PATIENT
  Sex: Female

DRUGS (5)
  1. ZYPREXA [Suspect]
     Indication: DEMENTIA
     Dosage: 7.5 MG, DAILY (1/D)
     Dates: start: 20071001, end: 20080101
  2. SYNTHROID [Concomitant]
  3. LEXAPRO [Concomitant]
  4. NAMENDA [Concomitant]
     Indication: DEMENTIA ALZHEIMER'S TYPE
  5. ARICEPT [Concomitant]
     Indication: DEMENTIA ALZHEIMER'S TYPE

REACTIONS (7)
  - ABASIA [None]
  - BACK PAIN [None]
  - CHEST PAIN [None]
  - MYOCARDIAL INFARCTION [None]
  - OEDEMA PERIPHERAL [None]
  - PAIN [None]
  - RENAL IMPAIRMENT [None]
